FAERS Safety Report 4572265-7 (Version None)
Quarter: 2005Q1

REPORT INFORMATION
  Report Type: 
  Country: None (occurrence: None)
  Receive Date: 20050203
  Receipt Date: 20050124
  Transmission Date: 20050727
  Serious: Yes (Other)
  Sender: FDA-Public Use
  Company Number: 200510061BNE

PATIENT
  Age: 48 Year
  Sex: Male
  Weight: 71.6 kg

DRUGS (26)
  1. SORAFENIB [Suspect]
     Indication: METASTATIC MALIGNANT MELANOMA
     Dosage: SEE IMAGE
     Route: 048
     Dates: start: 20040812, end: 20040902
  2. SORAFENIB [Suspect]
     Indication: METASTATIC MALIGNANT MELANOMA
     Dosage: SEE IMAGE
     Route: 048
     Dates: start: 20040909, end: 20040930
  3. DACARBAZINE [Suspect]
     Indication: METASTATIC MALIGNANT MELANOMA
     Dosage: 2000 MG, TOTAL DAILY
     Dates: start: 20040812
  4. BENDROFLUAZIDE [Concomitant]
  5. LISINOPRIL [Concomitant]
  6. FELODIPINE [Concomitant]
  7. CO-DANTHRAMER [Concomitant]
  8. SENOKOT [Concomitant]
  9. MILPAR [Concomitant]
  10. CYCLIZINE [Concomitant]
  11. SODIUM CHLORIDE [Concomitant]
  12. DEXTROSE [Concomitant]
  13. BUILD-UP [Concomitant]
  14. SLOW-K [Concomitant]
  15. DEXAMETHASONE [Concomitant]
  16. BUILD-UP [Concomitant]
  17. SLOW-K [Concomitant]
  18. DEXAMETHASONE [Concomitant]
  19. LANSOPRAZOLE [Concomitant]
  20. METOCLOPRAMIDE [Concomitant]
  21. MIDAZOLAM HCL [Concomitant]
  22. BACLOFEN [Concomitant]
  23. ZOPICLONE [Concomitant]
  24. ORAMORPH SR [Concomitant]
  25. ACETAMINOPHEN [Concomitant]
  26. HALOPERIDOL [Concomitant]

REACTIONS (1)
  - LIPASE INCREASED [None]
